FAERS Safety Report 6148570-X (Version None)
Quarter: 2009Q2

REPORT INFORMATION
  Report Type: 
  Country: None (occurrence: None)
  Receive Date: 20090408
  Receipt Date: 20090331
  Transmission Date: 20091009
  Serious: Yes (Hospitalization)
  Sender: FDA-Public Use
  Company Number: PHHO2009AT04342

PATIENT
  Sex: Male

DRUGS (27)
  1. CYCLOSPORINE [Suspect]
     Indication: RENAL TRANSPLANT
     Dosage: 250 MG DAILY
     Route: 048
     Dates: start: 20031202
  2. CYCLOSPORINE [Suspect]
     Dosage: 100 MG DAILY
  3. MYCOPHENOLATE MOFETIL [Suspect]
     Indication: RENAL TRANSPLANT
     Dosage: 2 G DAILY
     Route: 048
  4. PREDNISOLONE [Suspect]
     Indication: RENAL TRANSPLANT
     Dosage: 15 MG DAILY
     Route: 048
     Dates: start: 20031205
  5. AMLODIPINE [Concomitant]
  6. AMOXICILLIN [Concomitant]
  7. ATORVASTATIN [Concomitant]
  8. CARVEDILOL [Concomitant]
  9. CLINDAMYCIN HCL [Concomitant]
  10. CLONIDINE [Concomitant]
  11. DILATREND [Concomitant]
  12. ENALAPRIL [Concomitant]
  13. EPOETIN BETA [Concomitant]
  14. FLUCLOXACILLIN [Concomitant]
  15. LABETALOL HCL [Concomitant]
  16. LEVOFLOXACIN [Concomitant]
  17. METHYLPREDNISOLONE 4MG TAB [Concomitant]
  18. METOPROLOL [Concomitant]
  19. MOXONIDINE [Concomitant]
  20. NIFEDIPINE [Concomitant]
  21. NORVASC [Concomitant]
  22. PANTOPRAZOLE SODIUM [Concomitant]
     Dosage: UNK
  23. PENICILLIN NOS [Concomitant]
  24. PIPERACILLIN [Concomitant]
  25. TEGRETOL [Concomitant]
  26. TRANDATE [Concomitant]
  27. URAPIDIL [Concomitant]

REACTIONS (5)
  - BENIGN PROSTATIC HYPERPLASIA [None]
  - HYPERTENSION [None]
  - NEPHRECTOMY [None]
  - PROSTATIC OPERATION [None]
  - SHUNT THROMBOSIS [None]
